FAERS Safety Report 10679288 (Version 17)
Quarter: 2020Q1

REPORT INFORMATION
  Report Type: Report from Study
  Country: CA (occurrence: CA)
  Receive Date: 20141229
  Receipt Date: 20200210
  Transmission Date: 20200409
  Serious: Yes (Hospitalization, Other)
  Sender: FDA-Public Use
  Company Number: CA-INCYTE CORPORATION-2013IN002396

PATIENT

DRUGS (17)
  1. JAKAVI [Suspect]
     Active Substance: RUXOLITINIB
     Dosage: 20 MG, QD (2 PILLS OF 5 MG IN THE MORNING AND 2 PILLS OF 5 MG IN THE EVENING)
     Route: 048
  2. JAKAVI [Suspect]
     Active Substance: RUXOLITINIB
     Dosage: 2 DF, QD
     Route: 048
     Dates: start: 201608
  3. VOLTAREN [Suspect]
     Active Substance: DICLOFENAC SODIUM
     Indication: ARTHRITIS
     Dosage: UNK UNK, QD (2-3 TIMES)
     Route: 061
  4. JAKAVI [Suspect]
     Active Substance: RUXOLITINIB
     Dosage: 5 MG, BID
     Route: 048
     Dates: start: 20131126
  5. CALCIUM [Concomitant]
     Active Substance: CALCIUM
     Indication: PRODUCT USED FOR UNKNOWN INDICATION
     Dosage: UNK
     Route: 065
  6. JAKAVI [Suspect]
     Active Substance: RUXOLITINIB
     Dosage: 3 DF, TID
     Route: 048
  7. LIPITOR [Concomitant]
     Active Substance: ATORVASTATIN CALCIUM
     Indication: PRODUCT USED FOR UNKNOWN INDICATION
     Dosage: UNK
     Route: 065
  8. CITALOPRAM [Concomitant]
     Active Substance: CITALOPRAM HYDROBROMIDE
     Dosage: 10 MG, QD
     Route: 065
  9. JAKAVI [Suspect]
     Active Substance: RUXOLITINIB
     Dosage: 15 MG, QD (1 PILL OF 5 MG QAM AND 2 PILLS OF 5 MG QPM)
     Route: 048
  10. JAKAVI [Suspect]
     Active Substance: RUXOLITINIB
     Dosage: 5 MG, BID
     Route: 048
     Dates: start: 20160815
  11. JAKAVI [Suspect]
     Active Substance: RUXOLITINIB
     Dosage: 5 MG, QD
     Route: 048
  12. JAKAVI [Suspect]
     Active Substance: RUXOLITINIB
     Dosage: 15 MG, QD (1 PILL OF 5 MG QAM AND 2 PILLS OF 5 MG QPM)
     Route: 048
  13. ASA [Concomitant]
     Active Substance: ASPIRIN
     Indication: PRODUCT USED FOR UNKNOWN INDICATION
     Dosage: 81 MG, QD
     Route: 065
  14. CITALOPRAM [Concomitant]
     Active Substance: CITALOPRAM HYDROBROMIDE
     Indication: PRODUCT USED FOR UNKNOWN INDICATION
     Dosage: 20 MG, QD
     Route: 065
  15. CELEBREX [Concomitant]
     Active Substance: CELECOXIB
     Indication: PRODUCT USED FOR UNKNOWN INDICATION
     Dosage: UNK
     Route: 065
  16. JAKAVI [Suspect]
     Active Substance: RUXOLITINIB
     Indication: MYELOFIBROSIS
     Dosage: 10 MG, BID
     Route: 048
     Dates: start: 20130815
  17. JAKAVI [Suspect]
     Active Substance: RUXOLITINIB
     Dosage: 2 DF, BID
     Route: 048

REACTIONS (31)
  - Splenomegaly [Unknown]
  - Contusion [Unknown]
  - Peripheral vascular disorder [Unknown]
  - Pain [Unknown]
  - Abdominal distension [Unknown]
  - Muscle spasms [Unknown]
  - Weight increased [Unknown]
  - Pruritus [Not Recovered/Not Resolved]
  - Abdominal pain [Unknown]
  - Anaemia [Not Recovered/Not Resolved]
  - Dry mouth [Unknown]
  - Tremor [Unknown]
  - Platelet count decreased [Unknown]
  - Fatigue [Unknown]
  - Initial insomnia [Unknown]
  - Pain in extremity [Unknown]
  - Loss of consciousness [Unknown]
  - Vascular rupture [Unknown]
  - Flatulence [Unknown]
  - Feeling abnormal [Unknown]
  - Increased appetite [Unknown]
  - Alopecia [Unknown]
  - Haemoglobin decreased [Unknown]
  - Renal pain [Unknown]
  - Peripheral swelling [Unknown]
  - Back pain [Unknown]
  - Vomiting [Unknown]
  - Drug ineffective [Unknown]
  - Malaise [Unknown]
  - Arthralgia [Unknown]
  - Neuralgia [Unknown]

NARRATIVE: CASE EVENT DATE: 20150625
